FAERS Safety Report 7611721-1 (Version None)
Quarter: 2011Q3

REPORT INFORMATION
  Report Type: 
  Country: None (occurrence: None)
  Receive Date: 20110715
  Receipt Date: 20110712
  Transmission Date: 20111222
  Serious: Yes (Life-Threatening, Hospitalization, Other)
  Sender: FDA-Public Use
  Company Number: FR-PFIZER INC-2011077957

PATIENT
  Age: 78 Year
  Sex: Male

DRUGS (19)
  1. PLAVIX [Concomitant]
  2. SUCRALFATE [Concomitant]
  3. MIRTAZAPINE [Suspect]
     Indication: DEPRESSION
     Dosage: 15 MG, 1X/DAY
     Route: 048
     Dates: start: 20110301, end: 20110306
  4. UVEDOSE [Concomitant]
  5. TARGOCID [Suspect]
     Indication: OSTEITIS
     Dosage: 700MG TO 1600MG, DAILY
     Route: 042
     Dates: start: 20110222, end: 20110303
  6. RIFADIN [Suspect]
     Indication: OSTEITIS
     Dosage: 600 MG, 3X/DAY
     Dates: start: 20110301, end: 20110304
  7. IMOVANE [Concomitant]
  8. VITAMIN B1 TAB [Concomitant]
  9. INSPRA [Concomitant]
  10. BISOPROLOL FUMARATE [Concomitant]
  11. VITAMIN B6 [Concomitant]
  12. ARIXTRA [Concomitant]
  13. PERMIXON [Concomitant]
  14. PERINDOPRIL ERBUMINE [Concomitant]
  15. COSOPT [Concomitant]
  16. XALATAN [Concomitant]
  17. ATORVASTATIN CALCIUM [Suspect]
     Indication: DYSLIPIDAEMIA
     Dosage: 40 MG, 1X/DAY
     Route: 048
     Dates: end: 20110306
  18. ALPRAZOLAM [Suspect]
     Indication: ANXIETY
     Dosage: 0.25 MG, 1X/DAY
     Route: 048
     Dates: start: 20110227, end: 20110306
  19. ASPIRIN [Concomitant]

REACTIONS (4)
  - HEPATIC FAILURE [None]
  - OSTEOMYELITIS [None]
  - NECROSIS ISCHAEMIC [None]
  - CYTOLYTIC HEPATITIS [None]
